FAERS Safety Report 17218689 (Version 1)
Quarter: 2019Q4

REPORT INFORMATION
  Report Type: Spontaneous
  Country: CH (occurrence: CH)
  Receive Date: 20191231
  Receipt Date: 20191231
  Transmission Date: 20200122
  Serious: Yes (Life-Threatening, Hospitalization, Other)
  Sender: FDA-Public Use
  Company Number: CH-ORION CORPORATION ORION PHARMA-19_00008018

PATIENT
  Age: 77 Year
  Sex: Female

DRUGS (18)
  1. SIRDALUD [Concomitant]
     Active Substance: TIZANIDINE
     Dosage: AS NECESSARY
     Route: 048
     Dates: end: 20190924
  2. LYRICA [Concomitant]
     Active Substance: PREGABALIN
     Route: 048
  3. DALACIN C [Suspect]
     Active Substance: CLINDAMYCIN PHOSPHATE
     Indication: TENOSYNOVITIS
     Route: 048
     Dates: start: 20190917, end: 20190922
  4. MARCOUMAR [Concomitant]
     Active Substance: PHENPROCOUMON
     Dosage: STRENGTH 3MG, ACCORDING TO INR
     Route: 048
     Dates: end: 20190927
  5. ACIDUM FOLICUM STREULI [Concomitant]
     Active Substance: FOLIC ACID
     Dosage: EACH WEDNESDAY AND FRIDAY
     Route: 048
     Dates: end: 20190927
  6. EUTHYROX [Concomitant]
     Active Substance: LEVOTHYROXINE SODIUM
     Dosage: STRENGTH 75
     Route: 048
  7. MAGNEGON [Concomitant]
     Dosage: AS NECESSARY
     Route: 048
     Dates: end: 20190924
  8. ESOMEPRAZOL HELVEPHARM [Concomitant]
     Route: 048
  9. CO-AMOXI [Suspect]
     Active Substance: AMOXICILLIN\CLAVULANATE POTASSIUM
     Route: 048
     Dates: start: 20190916, end: 20190917
  10. BEPANTHEN [Concomitant]
     Dosage: STRENGTH 5%
     Route: 061
     Dates: end: 20190927
  11. METO ZEROK [Concomitant]
     Active Substance: METOPROLOL SUCCINATE
     Dosage: STRENGTH: 25MG
     Route: 048
  12. ZOLDORM [Concomitant]
     Active Substance: ZOLPIDEM TARTRATE
     Dosage: AS NECESSARY
     Route: 048
     Dates: end: 20190927
  13. TEMGESIC [Concomitant]
     Active Substance: BUPRENORPHINE HYDROCHLORIDE
     Indication: PAIN
     Dosage: AS NECESSARY
     Route: 060
     Dates: end: 20190927
  14. METHOTREXAT FARMOS [Suspect]
     Active Substance: METHOTREXATE
     Indication: PRODUCT USED FOR UNKNOWN INDICATION
     Dosage: STRENGTH 10MG, EACH THURSDAY
     Route: 048
     Dates: end: 20190927
  15. CO-AMOXI [Suspect]
     Active Substance: AMOXICILLIN\CLAVULANATE POTASSIUM
     Indication: TENOSYNOVITIS
     Route: 048
     Dates: start: 20190904, end: 20190907
  16. FUROSPIR [Concomitant]
     Active Substance: FUROSEMIDE\SPIRONOLACTONE
     Dosage: STRENGTH (SPIRONOLACTONE/FUROSEMIDE): 50/20 MG
     Route: 048
  17. ALDARA [Concomitant]
     Active Substance: IMIQUIMOD
     Dosage: STRENGTH: CREME 5%; 5 PER WEEK
     Route: 061
     Dates: start: 20181102, end: 20191124
  18. LACRYCON [Concomitant]
     Active Substance: HYALURONATE SODIUM
     Dosage: AS NECESSARY
     Route: 047
     Dates: end: 20190927

REACTIONS (4)
  - Acute generalised exanthematous pustulosis [Recovering/Resolving]
  - Urosepsis [Unknown]
  - Pancytopenia [Recovering/Resolving]
  - Oral candidiasis [Unknown]

NARRATIVE: CASE EVENT DATE: 20190923
